FAERS Safety Report 10955449 (Version 1)
Quarter: 2015Q1

REPORT INFORMATION
  Report Type: Spontaneous
  Country: US (occurrence: None)
  Receive Date: 20150325
  Receipt Date: 20150325
  Transmission Date: 20150721
  Serious: Yes (Life-Threatening, Hospitalization, Disabling, Other)
  Sender: FDA-Public Use
  Company Number: None

PATIENT
  Age: 52 Year
  Sex: Male
  Weight: 88.45 kg

DRUGS (3)
  1. ROFECOXIB [Suspect]
     Active Substance: ROFECOXIB
     Indication: BACK PAIN
     Dosage: 50 MG THREE OR FOUR TIMES DAILY ORAL
     Route: 048
     Dates: start: 20010101, end: 20031223
  2. VIOXX [Suspect]
     Active Substance: ROFECOXIB
     Indication: BACK PAIN
     Dosage: 50 MG THREE OR FOUR TIMES DAILY ORAL
     Route: 048
     Dates: start: 20010201, end: 20031225
  3. VIOXX [Suspect]
     Active Substance: ROFECOXIB
     Dosage: 50 MG THREE OR FOUR TIMES DAILY ORAL
     Route: 048
     Dates: start: 20010201, end: 20031225

REACTIONS (7)
  - Drug administration error [None]
  - Drug dependence [None]
  - Abdominal pain upper [None]
  - Malaise [None]
  - Choking [None]
  - Haemorrhage [None]
  - Product quality issue [None]

NARRATIVE: CASE EVENT DATE: 20031226
